FAERS Safety Report 5318948-2 (Version None)
Quarter: 2007Q2

REPORT INFORMATION
  Report Type: 
  Country: None (occurrence: None)
  Receive Date: 20070508
  Receipt Date: 20070502
  Transmission Date: 20071010
  Serious: Yes (Death, Hospitalization)
  Sender: FDA-Public Use
  Company Number: AR-ELI_LILLY_AND_COMPANY-AR200704000020

PATIENT
  Age: 65 Year
  Sex: Male

DRUGS (4)
  1. FOLIC ACID [Concomitant]
  2. VITAMIN B-12 [Concomitant]
  3. DEXAMETHASONE 0.5MG TAB [Concomitant]
  4. ALIMTA [Suspect]
     Indication: NON-SMALL CELL LUNG CANCER
     Dosage: 500 MG/M2, UNK
     Route: 042
     Dates: start: 20061129, end: 20061227

REACTIONS (4)
  - CONVULSION [None]
  - MALIGNANT NEOPLASM PROGRESSION [None]
  - PYOTHORAX [None]
  - SEPSIS [None]
